FAERS Safety Report 21665541 (Version 1)
Quarter: 2022Q4

REPORT INFORMATION
  Report Type: Other
  Country: CA (occurrence: CA)
  Receive Date: 20221201
  Receipt Date: 20221201
  Transmission Date: 20230113
  Serious: Yes (Hospitalization, Other)
  Sender: FDA-Public Use
  Company Number: CA-CELLTRION INC.-2022CA019894

PATIENT

DRUGS (25)
  1. TRASTUZUMAB [Suspect]
     Active Substance: TRASTUZUMAB
     Indication: Tardive dyskinesia
     Dosage: 866.0 MILLIGRAM
     Route: 065
  2. TRASTUZUMAB [Suspect]
     Active Substance: TRASTUZUMAB
     Dosage: UNK
     Route: 048
  3. TRASTUZUMAB [Suspect]
     Active Substance: TRASTUZUMAB
     Dosage: 626.0 MILLIGRAM
     Route: 065
  4. APREPITANT [Suspect]
     Active Substance: APREPITANT
     Indication: Supportive care
     Dosage: 125.0 MILLIGRAM
     Route: 048
  5. APREPITANT [Suspect]
     Active Substance: APREPITANT
     Dosage: 125.0 MILLIGRAM, 1 EVERY 1 DAYS
     Route: 048
  6. BETAMETHASONE [Suspect]
     Active Substance: BETAMETHASONE
     Indication: Tardive dyskinesia
     Dosage: UNK
     Route: 048
  7. BETAMETHASONE [Suspect]
     Active Substance: BETAMETHASONE
     Dosage: UNK
     Route: 065
  8. DEXAMETHASONE [Suspect]
     Active Substance: DEXAMETHASONE
     Indication: Supportive care
     Dosage: 20.0 MILLIGRAM, 1 EVERY 1 DAYS
     Route: 048
  9. DOXORUBICIN [Suspect]
     Active Substance: DOXORUBICIN
     Indication: Breast cancer female
     Dosage: 136.0 MILLIGRAM, 1 EVERY 2 WEEKS
     Route: 042
  10. EMEND [Suspect]
     Active Substance: APREPITANT
     Indication: Product used for unknown indication
     Route: 048
  11. ENOXAPARIN [Suspect]
     Active Substance: ENOXAPARIN
     Indication: Tardive dyskinesia
     Dosage: 150.0 MILLIGRAM, 1 EVERY 1 DAYS
     Route: 058
  12. FILGRASTIM [Suspect]
     Active Substance: FILGRASTIM
     Indication: Supportive care
     Route: 065
  13. FILGRASTIM [Suspect]
     Active Substance: FILGRASTIM
     Dosage: 480.0 MICROGRAM, 1 EVERY 1 DAYS
     Route: 048
  14. LEVOFLOXACIN HEMIHYDRATE [Suspect]
     Active Substance: LEVOFLOXACIN
     Indication: Tardive dyskinesia
     Dosage: 500.0 MILLIGRAM, 1 EVERY 1 DAYS
     Route: 048
  15. LORAZEPAM [Suspect]
     Active Substance: LORAZEPAM
     Indication: Tardive dyskinesia
     Dosage: 0.5 MILLIGRAM, 2 EVERY 1 DAYS
     Route: 048
  16. METOCLOPRAMIDE [Suspect]
     Active Substance: METOCLOPRAMIDE
     Indication: Tardive dyskinesia
     Dosage: 10.0 MILLIGRAM, 4 EVERY 1 DAYS
     Route: 048
  17. ONDANSETRON HYDROCHLORIDE [Suspect]
     Active Substance: ONDANSETRON HYDROCHLORIDE
     Indication: Supportive care
     Dosage: 8.0 MILLIGRAM
     Route: 048
  18. PACLITAXEL [Suspect]
     Active Substance: PACLITAXEL
     Indication: Supportive care
     Dosage: 303.0 MILLIGRAM
     Route: 042
  19. PACLITAXEL [Suspect]
     Active Substance: PACLITAXEL
     Indication: Breast cancer female
  20. PACLITAXEL [Suspect]
     Active Substance: PACLITAXEL
     Indication: Supportive care
     Dosage: 393.0 MILLIGRAM
     Route: 042
  21. PACLITAXEL [Suspect]
     Active Substance: PACLITAXEL
     Indication: Breast cancer female
     Dosage: 243.0 MILLIGRAM
     Route: 042
  22. PEGFILGRASTIM [Suspect]
     Active Substance: PEGFILGRASTIM
     Indication: Supportive care
     Dosage: 6.0 MILLIGRAM
     Route: 058
  23. CYCLOPHOSPHAMIDE [Suspect]
     Active Substance: CYCLOPHOSPHAMIDE
     Indication: Breast cancer female
     Dosage: 1360.0 MILLIGRAM, 1 EVERY 2 WEEKS
     Route: 042
  24. RANITIDINE HYDROCHLORIDE [Suspect]
     Active Substance: RANITIDINE HYDROCHLORIDE
     Indication: Tardive dyskinesia
     Dosage: 150.0 MILLIGRAM, 1 EVERY 2 WEEKS
     Route: 048
  25. TYLENOL WITH CODEINE [Suspect]
     Active Substance: ACETAMINOPHEN\CODEINE PHOSPHATE
     Indication: Tardive dyskinesia

REACTIONS (12)
  - Atelectasis [Recovered/Resolved]
  - Computerised tomogram thorax abnormal [Recovered/Resolved]
  - Cough [Recovered/Resolved]
  - Dyspnoea [Recovered/Resolved]
  - Fatigue [Recovered/Resolved]
  - Gastrointestinal disorder [Recovered/Resolved]
  - Hypoxia [Recovered/Resolved]
  - Nausea [Recovered/Resolved]
  - Pyrexia [Recovered/Resolved]
  - Rash [Recovered/Resolved]
  - Off label use [Recovered/Resolved]
  - Off label use [Unknown]
